FAERS Safety Report 24616569 (Version 1)
Quarter: 2024Q4

REPORT INFORMATION
  Report Type: Spontaneous
  Country: ES (occurrence: ES)
  Receive Date: 20241114
  Receipt Date: 20241114
  Transmission Date: 20250115
  Serious: Yes (Other)
  Sender: UCB
  Company Number: ES-UCBSA-2024058780

PATIENT
  Sex: Male

DRUGS (2)
  1. BRIVIACT [Suspect]
     Active Substance: BRIVARACETAM
     Indication: Partial seizures
     Dosage: 50 MG/ML
  2. BRIVIACT [Suspect]
     Active Substance: BRIVARACETAM
     Dosage: 3 MILLIGRAM/KILOGRAM, ONCE DAILY (QD)

REACTIONS (7)
  - Partial seizures [Unknown]
  - Status epilepticus [Unknown]
  - Cognitive disorder [Unknown]
  - Somnolence [Unknown]
  - Hypotonia [Unknown]
  - Stereotypy [Unknown]
  - Enuresis [Unknown]
